FAERS Safety Report 21792403 (Version 2)
Quarter: 2023Q1

REPORT INFORMATION
  Report Type: Spontaneous
  Country: IT (occurrence: IT)
  Receive Date: 20221229
  Receipt Date: 20230123
  Transmission Date: 20230417
  Serious: Yes (Death)
  Sender: FDA-Public Use
  Company Number: None

PATIENT
  Age: 65 Year
  Sex: Male
  Weight: 80 kg

DRUGS (2)
  1. KEYTRUDA [Interacting]
     Active Substance: PEMBROLIZUMAB
     Indication: Renal cancer stage IV
     Dosage: 200 MG IV EVERY 21 DAYS
     Route: 042
     Dates: start: 20220916, end: 20221007
  2. INLYTA [Interacting]
     Active Substance: AXITINIB
     Indication: Renal cancer stage IV
     Dosage: 5 MG, 2/DIE CONTINUOUSLY
     Route: 048
     Dates: start: 2022, end: 20220916

REACTIONS (1)
  - Drug-induced liver injury [Fatal]

NARRATIVE: CASE EVENT DATE: 20221026
